FAERS Safety Report 14497189 (Version 1)
Quarter: 2018Q1

REPORT INFORMATION
  Report Type: Spontaneous
  Country: US (occurrence: US)
  Receive Date: 20180206
  Receipt Date: 20180206
  Transmission Date: 20180509
  Serious: Yes (Death, Hospitalization)
  Sender: FDA-Public Use
  Company Number: None

PATIENT
  Age: 10 Year
  Sex: Male
  Weight: 50.3 kg

DRUGS (5)
  1. PREDNISONE. [Suspect]
     Active Substance: PREDNISONE
     Dates: end: 20171113
  2. ALTEPLASE. [Concomitant]
     Active Substance: ALTEPLASE
  3. METHOTREXATE. [Suspect]
     Active Substance: METHOTREXATE
     Dates: end: 20170102
  4. MERCAPTOPURINE. [Suspect]
     Active Substance: MERCAPTOPURINE
     Dates: end: 20180107
  5. VINCRISTINE SULFATE. [Suspect]
     Active Substance: VINCRISTINE SULFATE
     Dates: end: 20171114

REACTIONS (20)
  - Headache [None]
  - Abdominal discomfort [None]
  - Pneumonia [None]
  - Retching [None]
  - Pleural effusion [None]
  - Cough [None]
  - Mallory-Weiss syndrome [None]
  - Diarrhoea [None]
  - Unresponsive to stimuli [None]
  - Loose tooth [None]
  - Loss of consciousness [None]
  - Haemoptysis [None]
  - Fatigue [None]
  - Lethargy [None]
  - Influenza [None]
  - Haemolytic anaemia [None]
  - Neutropenia [None]
  - Thrombosis [None]
  - Vomiting [None]
  - Pulmonary haemorrhage [None]

NARRATIVE: CASE EVENT DATE: 20180108
